FAERS Safety Report 4574543-4 (Version None)
Quarter: 2005Q1

REPORT INFORMATION
  Report Type: 
  Country: None (occurrence: None)
  Receive Date: 20050208
  Receipt Date: 20031030
  Transmission Date: 20050727
  Serious: No
  Sender: FDA-Public Use
  Company Number: US-GLAXOSMITHKLINE-A0432652A

PATIENT
  Sex: Female

DRUGS (2)
  1. PAXIL [Suspect]
     Indication: ILL-DEFINED DISORDER
     Dosage: 10MG PER DAY
     Route: 048
     Dates: start: 20000809
  2. DIAZEPAM [Concomitant]

REACTIONS (1)
  - DRUG WITHDRAWAL SYNDROME [None]
